FAERS Safety Report 6019432-3 (Version None)
Quarter: 2008Q4

REPORT INFORMATION
  Report Type: 
  Country: None (occurrence: None)
  Receive Date: 20081224
  Receipt Date: 20081215
  Transmission Date: 20090506
  Serious: Yes (Hospitalization)
  Sender: FDA-Public Use
  Company Number: DK-CELGENEUS-044-21880-08080239

PATIENT
  Sex: Male
  Weight: 61 kg

DRUGS (9)
  1. REVLIMID [Suspect]
     Indication: MYELODYSPLASTIC SYNDROME
     Route: 048
     Dates: start: 20080527, end: 20080701
  2. REVLIMID [Suspect]
     Route: 048
     Dates: start: 20080701, end: 20080715
  3. REVLIMID [Suspect]
     Route: 048
     Dates: start: 20080715, end: 20080730
  4. REVLIMID [Suspect]
     Route: 048
     Dates: start: 20080730, end: 20080804
  5. REVLIMID [Suspect]
     Route: 048
     Dates: start: 20080812, end: 20080819
  6. HYDREA [Concomitant]
     Indication: PROPHYLAXIS
     Route: 048
  7. MAGNYL [Concomitant]
     Indication: THROMBOSIS PROPHYLAXIS
     Route: 048
  8. MANDOLGIN [Concomitant]
     Route: 048
     Dates: start: 20080806, end: 20081005
  9. KODIMAGNYL [Concomitant]
     Dosage: 1/2 TAB
     Route: 048

REACTIONS (4)
  - ANAEMIA [None]
  - DEHYDRATION [None]
  - GASTRITIS EROSIVE [None]
  - SYNCOPE [None]
